FAERS Safety Report 19120790 (Version 3)
Quarter: 2021Q3

REPORT INFORMATION
  Report Type: Spontaneous
  Country: US (occurrence: US)
  Receive Date: 20210412
  Receipt Date: 20210817
  Transmission Date: 20211014
  Serious: Yes (Hospitalization)
  Sender: FDA-Public Use
  Company Number: US-GLOBAL BLOOD THERAPEUTICS INC-US-GBT-21-01089

PATIENT
  Age: 26 Year
  Sex: Male

DRUGS (10)
  1. OXYCODONE [Concomitant]
     Active Substance: OXYCODONE
     Indication: SICKLE CELL DISEASE
  2. IBUPROFEN. [Concomitant]
     Active Substance: IBUPROFEN
     Indication: CHRONIC IDIOPATHIC PAIN SYNDROME
  3. JADENU [Concomitant]
     Active Substance: DEFERASIROX
     Indication: IRON OVERLOAD
  4. FOLIC ACID. [Concomitant]
     Active Substance: FOLIC ACID
     Indication: SICKLE CELL DISEASE
     Route: 048
  5. OXBRYTA [Suspect]
     Active Substance: VOXELOTOR
     Indication: SICKLE CELL ANAEMIA WITH CRISIS
  6. OXYCODONE [Concomitant]
     Active Substance: OXYCODONE
     Indication: PAIN
     Route: 048
  7. OXYCODONE [Concomitant]
     Active Substance: OXYCODONE
     Indication: CHRONIC IDIOPATHIC PAIN SYNDROME
  8. IBUPROFEN. [Concomitant]
     Active Substance: IBUPROFEN
     Indication: SICKLE CELL DISEASE
  9. HYDROXYUREA. [Concomitant]
     Active Substance: HYDROXYUREA
     Indication: SICKLE CELL DISEASE
     Dosage: 5 CAPS
     Route: 048
  10. OXBRYTA [Suspect]
     Active Substance: VOXELOTOR
     Indication: SICKLE CELL DISEASE
     Route: 048
     Dates: start: 20200513

REACTIONS (2)
  - Sickle cell anaemia with crisis [Recovered/Resolved]
  - Sickle cell anaemia with crisis [Recovered/Resolved]

NARRATIVE: CASE EVENT DATE: 20210309
